FAERS Safety Report 25524525 (Version 1)
Quarter: 2025Q3

REPORT INFORMATION
  Report Type: Spontaneous
  Country: US (occurrence: None)
  Receive Date: 20250703
  Receipt Date: 20250703
  Transmission Date: 20251020
  Serious: Yes (Hospitalization)
  Sender: FDA-CTU
  Company Number: None

PATIENT
  Sex: Male

DRUGS (12)
  1. XOLAIR [Suspect]
     Active Substance: OMALIZUMAB
     Indication: Asthma
     Dosage: FREQUENCY : EVERY OTHER WEEK;?
     Route: 058
     Dates: start: 20250502
  2. XOLAIR [Suspect]
     Active Substance: OMALIZUMAB
     Indication: Asthma
     Dosage: FREQUENCY : EVERY OTHER WEEK;?
     Route: 058
     Dates: start: 20250502
  3. BUTALBITAL AND ACETAMINOPHEN [Concomitant]
     Active Substance: ACETAMINOPHEN\BUTALBITAL
  4. DULOXETINE [Concomitant]
     Active Substance: DULOXETINE
  5. FAMOTIDINE [Concomitant]
     Active Substance: FAMOTIDINE
  6. FLUTICASONE SPR [Concomitant]
  7. FOLIC ACID [Concomitant]
     Active Substance: FOLIC ACID
  8. LEFLUNOMIDE [Concomitant]
     Active Substance: LEFLUNOMIDE
  9. LYRICA [Concomitant]
     Active Substance: PREGABALIN
  10. METHOTREXATE [Concomitant]
     Active Substance: METHOTREXATE
  11. MOUNJARO [Concomitant]
     Active Substance: TIRZEPATIDE
  12. NAPROXEN [Concomitant]
     Active Substance: NAPROXEN

REACTIONS (2)
  - Asthma [None]
  - Quality of life decreased [None]
